FAERS Safety Report 11121283 (Version 1)
Quarter: 2015Q2

REPORT INFORMATION
  Report Type: Spontaneous
  Country: US (occurrence: None)
  Receive Date: 20150518
  Receipt Date: 20150518
  Transmission Date: 20150821
  Serious: No
  Sender: FDA-Public Use
  Company Number: None

PATIENT
  Age: 68 Year
  Sex: Male

DRUGS (2)
  1. GABAPENTIN. [Suspect]
     Active Substance: GABAPENTIN
     Indication: NEURALGIA
     Dosage: 2 TABLETS AM AND 3 TABLETS PM
     Route: 048
     Dates: start: 20150427, end: 20150516
  2. GABAPENTIN. [Suspect]
     Active Substance: GABAPENTIN
     Indication: SEIZURE
     Dosage: 2 TABLETS AM AND 3 TABLETS PM
     Route: 048
     Dates: start: 20150427, end: 20150516

REACTIONS (3)
  - Drug dispensing error [None]
  - Drug effect variable [None]
  - No adverse event [None]

NARRATIVE: CASE EVENT DATE: 20150427
